FAERS Safety Report 9910103 (Version 1)
Quarter: 2014Q1

REPORT INFORMATION
  Report Type: Spontaneous
  Country: US (occurrence: US)
  Receive Date: 20140219
  Receipt Date: 20140219
  Transmission Date: 20141002
  Serious: Yes (Hospitalization, Other)
  Sender: FDA-Public Use
  Company Number: US-SA-2014SA019372

PATIENT
  Sex: Male
  Weight: 70.3 kg

DRUGS (12)
  1. PLAVIX [Suspect]
     Indication: CORONARY ARTERY DISEASE
     Route: 048
     Dates: start: 2004
  2. PLAVIX [Suspect]
     Indication: STENT PLACEMENT
     Route: 048
     Dates: start: 2004
  3. PLAVIX [Suspect]
     Indication: CORONARY ARTERY DISEASE
     Route: 048
  4. PLAVIX [Suspect]
     Indication: STENT PLACEMENT
     Route: 048
  5. CLOPIDOGREL BISULFATE [Suspect]
     Route: 065
  6. CLOPIDOGREL BISULFATE [Suspect]
     Route: 065
  7. ATORVASTATIN [Concomitant]
     Route: 065
  8. PROTONIX [Concomitant]
     Route: 065
  9. DIOVAN [Concomitant]
     Route: 065
  10. AMLODIPINE [Concomitant]
     Route: 065
  11. ASPIRIN [Concomitant]
  12. NEXIUM [Concomitant]
     Indication: GASTRITIS
     Route: 065

REACTIONS (3)
  - Stent placement [Unknown]
  - Gastrointestinal disorder [Unknown]
  - Drug dose omission [Unknown]
